FAERS Safety Report 20893253 (Version 2)
Quarter: 2022Q4

REPORT INFORMATION
  Report Type: Spontaneous
  Country: US (occurrence: US)
  Receive Date: 20220531
  Receipt Date: 20221129
  Transmission Date: 20230112
  Serious: No
  Sender: FDA-Public Use
  Company Number: US-BRISTOL-MYERS SQUIBB COMPANY-2022-033454

PATIENT
  Age: 22 Year
  Sex: Female
  Weight: 54.43 kg

DRUGS (1)
  1. ORENCIA [Suspect]
     Active Substance: ABATACEPT
     Indication: Juvenile idiopathic arthritis
     Dosage: DOSE : 1;     FREQ : ONCE A WEEK
     Route: 058

REACTIONS (2)
  - Urinary tract infection [Unknown]
  - Pain [Unknown]
